FAERS Safety Report 7344848-2 (Version None)
Quarter: 2011Q1

REPORT INFORMATION
  Report Type: 
  Country: None (occurrence: None)
  Receive Date: 20110310
  Receipt Date: 20110307
  Transmission Date: 20110831
  Serious: Yes (Other)
  Sender: FDA-Public Use
  Company Number: JP-PFIZER INC-2011049724

PATIENT
  Age: 25 Year
  Sex: Female

DRUGS (1)
  1. PRO-BANTHINE [Suspect]
     Indication: HYPERHIDROSIS
     Dosage: UNK
     Route: 048

REACTIONS (2)
  - VISUAL FIELD DEFECT [None]
  - VISUAL IMPAIRMENT [None]
